FAERS Safety Report 8817571 (Version 1)
Quarter: 2012Q4

REPORT INFORMATION
  Report Type: 
  Country: US (occurrence: US)
  Receive Date: 20121001
  Receipt Date: 20121001
  Transmission Date: 20130627
  Serious: No
  Sender: FDA-Public Use
  Company Number: US-MUTUAL PHARMACEUTICAL COMPANY, INC.-CLND20110002

PATIENT
  Sex: Female
  Weight: 69.01 kg

DRUGS (6)
  1. CLONIDINE HYDROCHLORIDE [Suspect]
     Indication: BLOOD PRESSURE HIGH
     Route: 048
     Dates: end: 201107
  2. FUROSEMIDE [Concomitant]
     Indication: BLOOD PRESSURE HIGH
     Route: 048
  3. LISINOPRIL [Concomitant]
     Indication: BLOOD PRESSURE HIGH
     Route: 048
  4. ASPIRIN [Concomitant]
     Indication: BLOOD PRESSURE HIGH
     Route: 048
  5. METOPROLOL [Concomitant]
     Indication: BLOOD PRESSURE HIGH
     Route: 048
  6. DOXAZOSIN [Concomitant]
     Indication: BLOOD PRESSURE HIGH
     Route: 048

REACTIONS (4)
  - Somnolence [Recovered/Resolved]
  - Dry mouth [Recovered/Resolved]
  - Fatigue [Recovered/Resolved]
  - Dizziness [Recovered/Resolved]
